FAERS Safety Report 7035071-X (Version None)
Quarter: 2010Q4

REPORT INFORMATION
  Report Type: 
  Country: None (occurrence: None)
  Receive Date: 20101007
  Receipt Date: 20101007
  Transmission Date: 20110411
  Serious: Yes (Other)
  Sender: FDA-Public Use
  Company Number: None

PATIENT
  Age: 5 Year
  Sex: Male
  Weight: 20.4119 kg

DRUGS (3)
  1. GAMMAGARD LIQUID [Suspect]
     Indication: COMBINED IMMUNODEFICIENCY
     Dosage: 7.5 GRAMS EVERY 4 WEEKS IV DRIP
     Route: 041
     Dates: start: 20101005, end: 20101005
  2. GAMMAGARD LIQUID [Suspect]
  3. SODIUM CHLORIDE [Concomitant]

REACTIONS (1)
  - URTICARIA [None]
